FAERS Safety Report 20044048 (Version 2)
Quarter: 2021Q4

REPORT INFORMATION
  Report Type: Spontaneous
  Country: FR (occurrence: FR)
  Receive Date: 20211108
  Receipt Date: 20211202
  Transmission Date: 20220303
  Serious: Yes (Other)
  Sender: FDA-Public Use
  Company Number: FR-ZAMBON-202102871FRA

PATIENT

DRUGS (2)
  1. IVERMECTIN [Suspect]
     Active Substance: IVERMECTIN
     Indication: Product used for unknown indication
     Dosage: 1 DOSAGE FORM
     Route: 065
     Dates: start: 20210915
  2. ASCABIOL [BENZYL BENZOATE;SULFIRAM] [Concomitant]
     Indication: Product used for unknown indication
     Dosage: UNK
     Dates: start: 20210915

REACTIONS (3)
  - Skin exfoliation [Unknown]
  - Skin hyperpigmentation [Unknown]
  - Nicotinic acid deficiency [Recovering/Resolving]

NARRATIVE: CASE EVENT DATE: 20210101
